FAERS Safety Report 9463249 (Version 2)
Quarter: 2013Q3

REPORT INFORMATION
  Report Type: Report from Study
  Country: PE (occurrence: PE)
  Receive Date: 20130819
  Receipt Date: 20130904
  Transmission Date: 20140515
  Serious: Yes (Other)
  Sender: FDA-Public Use
  Company Number: PE-ROCHE-1261537

PATIENT
  Age: 30 Year
  Sex: Male

DRUGS (2)
  1. PEGASYS [Suspect]
     Indication: HEPATITIS C
     Route: 058
     Dates: start: 20130706, end: 20130820
  2. RIBAVIRIN [Suspect]
     Indication: HEPATITIS C
     Route: 048
     Dates: start: 20130706

REACTIONS (4)
  - Malaise [Not Recovered/Not Resolved]
  - Hepatic pain [Not Recovered/Not Resolved]
  - Hepatic cancer [Unknown]
  - Jaundice [Unknown]
